FAERS Safety Report 10703049 (Version 1)
Quarter: 2015Q1

REPORT INFORMATION
  Report Type: Spontaneous
  Country: CN (occurrence: CN)
  Receive Date: 20150111
  Receipt Date: 20150111
  Transmission Date: 20150721
  Serious: Yes (Hospitalization, Other)
  Sender: FDA-Public Use
  Company Number: CN-BRISTOL-MYERS SQUIBB COMPANY-BMS-2014-007145

PATIENT
  Age: 41 Year
  Sex: Male

DRUGS (1)
  1. BARACLUDE [Suspect]
     Active Substance: ENTECAVIR
     Indication: HEPATITIS B
     Dosage: .5 MG, QD
     Route: 048
     Dates: start: 201406

REACTIONS (2)
  - Hepatic cancer [Unknown]
  - Colon cancer [Unknown]
